FAERS Safety Report 8440164-6 (Version None)
Quarter: 2012Q2

REPORT INFORMATION
  Report Type: 
  Country: None (occurrence: None)
  Receive Date: 20120615
  Receipt Date: 20120611
  Transmission Date: 20120825
  Serious: Yes (Other)
  Sender: FDA-Public Use
  Company Number: US-ROCHE-1027687

PATIENT
  Sex: Male
  Weight: 72.64 kg

DRUGS (3)
  1. ACCUTANE [Suspect]
     Dates: start: 19940601, end: 19960701
  2. ACCUTANE [Suspect]
     Indication: ACNE
     Route: 048
     Dates: start: 19880101
  3. ACCUTANE [Suspect]
     Dates: start: 20061001, end: 20071001

REACTIONS (4)
  - IRRITABLE BOWEL SYNDROME [None]
  - CROHN'S DISEASE [None]
  - MENTAL DISORDER [None]
  - DEPRESSION [None]
